FAERS Safety Report 12500049 (Version 1)
Quarter: 2016Q2

REPORT INFORMATION
  Report Type: Spontaneous
  Country: US (occurrence: None)
  Receive Date: 20160624
  Receipt Date: 20160624
  Transmission Date: 20160815
  Serious: No
  Sender: FDA-Public Use
  Company Number: None

PATIENT
  Age: 68 Year
  Sex: Female
  Weight: 52.62 kg

DRUGS (1)
  1. DOMPERIDONE, 10MG [Suspect]
     Active Substance: DOMPERIDONE
     Indication: IMPAIRED GASTRIC EMPTYING
     Route: 048
     Dates: start: 20151014, end: 20160616

REACTIONS (4)
  - Intussusception [None]
  - Ileus [None]
  - Renal impairment [None]
  - Contrast media reaction [None]

NARRATIVE: CASE EVENT DATE: 20160616
